FAERS Safety Report 17269390 (Version 4)
Quarter: 2021Q2

REPORT INFORMATION
  Report Type: Spontaneous
  Country: JP (occurrence: JP)
  Receive Date: 20200114
  Receipt Date: 20210407
  Transmission Date: 20210716
  Serious: Yes (Death, Hospitalization, Other)
  Sender: FDA-Public Use
  Company Number: JP-ASTRAZENECA-2020SE04890

PATIENT
  Age: 74 Year
  Sex: Female
  Weight: 64 kg

DRUGS (17)
  1. TAGRISSO [Suspect]
     Active Substance: OSIMERTINIB
     Indication: NON-SMALL CELL LUNG CANCER
     Route: 048
     Dates: start: 20190815, end: 20191226
  2. NEXIUM [Concomitant]
     Active Substance: ESOMEPRAZOLE MAGNESIUM
     Indication: GASTRIC DISORDER
     Route: 048
     Dates: start: 20190201, end: 20190316
  3. TAGRISSO [Suspect]
     Active Substance: OSIMERTINIB
     Indication: NON-SMALL CELL LUNG CANCER
     Route: 048
     Dates: start: 20190707, end: 20190802
  4. TAKECAB [Concomitant]
     Active Substance: VONOPRAZAN FUMARATE
     Indication: GASTRIC DISORDER
     Route: 048
     Dates: start: 20190317
  5. LYRICA [Concomitant]
     Active Substance: PREGABALIN
     Indication: HYPOAESTHESIA
     Route: 048
     Dates: start: 20190507, end: 20190627
  6. NORVASC [Concomitant]
     Active Substance: AMLODIPINE BESYLATE
     Indication: HYPERTENSION
     Route: 048
  7. TEGRETOL [Concomitant]
     Active Substance: CARBAMAZEPINE
     Indication: HYPOAESTHESIA
     Route: 048
     Dates: start: 20190507, end: 20190516
  8. NOVAMIN [Concomitant]
     Indication: NAUSEA
     Route: 048
     Dates: start: 20190513, end: 20190528
  9. TELMISARTAN. [Concomitant]
     Active Substance: TELMISARTAN
     Indication: HYPERTENSION
     Route: 048
     Dates: start: 20190314
  10. TAGRISSO [Suspect]
     Active Substance: OSIMERTINIB
     Indication: NON-SMALL CELL LUNG CANCER
     Route: 048
     Dates: start: 20190201, end: 20190312
  11. TRAMCET [Suspect]
     Active Substance: ACETAMINOPHEN\TRAMADOL
     Indication: PAIN
     Dosage: DOSE UNKNOWN
     Route: 048
     Dates: start: 20190513, end: 20190516
  12. CRESTOR [Concomitant]
     Active Substance: ROSUVASTATIN CALCIUM
     Indication: DYSLIPIDAEMIA
     Route: 048
  13. TERPERAN [Concomitant]
     Active Substance: METOCLOPRAMIDE HYDROCHLORIDE
     Indication: NAUSEA
     Route: 048
     Dates: start: 20190707, end: 20190715
  14. TAGRISSO [Suspect]
     Active Substance: OSIMERTINIB
     Indication: NON-SMALL CELL LUNG CANCER
     Route: 048
     Dates: start: 20190513, end: 20190630
  15. MINOCYCLINE HYDROCHLORIDE. [Concomitant]
     Active Substance: MINOCYCLINE HYDROCHLORIDE
     Indication: SKIN DISORDER PROPHYLAXIS
     Route: 048
     Dates: start: 20190130
  16. MYSLEE [Concomitant]
     Active Substance: ZOLPIDEM TARTRATE
     Indication: INSOMNIA
     Route: 048
  17. RIZE [Concomitant]
     Active Substance: CLOTIAZEPAM
     Indication: INSOMNIA
     Route: 048

REACTIONS (15)
  - Pleural effusion [Unknown]
  - Respiratory distress [Unknown]
  - Cancer pain [Not Recovered/Not Resolved]
  - Venous thrombosis limb [Not Recovered/Not Resolved]
  - Paronychia [Recovered/Resolved]
  - Hypoaesthesia [Unknown]
  - Cardiac failure [Fatal]
  - Interstitial lung disease [Fatal]
  - Disseminated intravascular coagulation [Fatal]
  - Palmar-plantar erythrodysaesthesia syndrome [Recovered/Resolved]
  - Oedema [Recovered/Resolved]
  - Constipation [Not Recovered/Not Resolved]
  - Adrenal insufficiency [Recovered/Resolved]
  - Malaise [Unknown]
  - Glossodynia [Unknown]

NARRATIVE: CASE EVENT DATE: 20190312
